FAERS Safety Report 21721142 (Version 1)
Quarter: 2022Q4

REPORT INFORMATION
  Report Type: Spontaneous
  Country: US (occurrence: US)
  Receive Date: 20221213
  Receipt Date: 20221213
  Transmission Date: 20230112
  Serious: No
  Sender: FDA-Public Use
  Company Number: US-SA-SAC20221212000042

PATIENT
  Age: 37 Year
  Sex: Female

DRUGS (3)
  1. DUPIXENT [Suspect]
     Active Substance: DUPILUMAB
     Indication: Dermatitis contact
     Dosage: 300 MG, QOW
     Route: 058
     Dates: start: 20220630
  2. CITALOPRAM [Concomitant]
     Active Substance: CITALOPRAM HYDROBROMIDE
     Dosage: UNK
  3. FOLIC ACID\IRON\MINERALS\VITAMINS [Concomitant]
     Active Substance: FOLIC ACID\IRON\MINERALS\VITAMINS
     Dosage: UNK

REACTIONS (3)
  - Injection site erythema [Not Recovered/Not Resolved]
  - Injection site dryness [Not Recovered/Not Resolved]
  - Product use in unapproved indication [Unknown]

NARRATIVE: CASE EVENT DATE: 20220630
